FAERS Safety Report 9815685 (Version 2)
Quarter: 2014Q2

REPORT INFORMATION
  Report Type: Spontaneous
  Country: US (occurrence: US)
  Receive Date: 20140114
  Receipt Date: 20140417
  Transmission Date: 20141212
  Serious: Yes (Hospitalization, Disabling, Other)
  Sender: FDA-Public Use
  Company Number: US-009507513-1401USA002585

PATIENT
  Sex: Female

DRUGS (10)
  1. FOSAMAX [Suspect]
     Indication: OSTEOPOROSIS
     Dosage: 70 MG, UNK
     Route: 048
     Dates: start: 20040423, end: 20040818
  2. FOSAMAX [Suspect]
     Indication: OSTEOPENIA
     Dosage: 10 MG, UNK
     Route: 048
     Dates: start: 20040818, end: 20071009
  3. FOSAMAX PLUS D [Suspect]
     Indication: OSTEOPENIA
     Dosage: 70MG/2800IU
     Route: 048
     Dates: start: 20071009, end: 20081003
  4. FOSAMAX PLUS D [Suspect]
     Indication: OSTEOPENIA
  5. ALENDRONATE SODIUM [Suspect]
     Indication: OSTEOPOROSIS
     Dosage: 70 MG, UNK
     Route: 048
     Dates: start: 20081003, end: 20110901
  6. ALENDRONATE SODIUM [Suspect]
     Indication: OSTEOPENIA
  7. PREVACID [Concomitant]
     Dosage: UNK
     Dates: start: 2005
  8. CALCIUM (UNSPECIFIED) [Concomitant]
     Dosage: 600 MG, BID
     Dates: start: 2006
  9. VITAMIN D (UNSPECIFIED) [Concomitant]
     Dosage: 1000 MICROGRAM, QD
  10. MIACALCIN [Concomitant]
     Indication: OSTEOPOROSIS

REACTIONS (16)
  - Femur fracture [Recovering/Resolving]
  - Intramedullary rod insertion [Unknown]
  - Femur fracture [Recovering/Resolving]
  - High turnover osteopathy [Unknown]
  - Femur fracture [Unknown]
  - Femur fracture [Unknown]
  - Stress fracture [Unknown]
  - Osteoporosis [Unknown]
  - Dental implantation [Unknown]
  - Osteoarthritis [Unknown]
  - Antinuclear antibody increased [Unknown]
  - Tumour excision [Unknown]
  - Hyperlipidaemia [Unknown]
  - Anaemia postoperative [Unknown]
  - Nausea [Unknown]
  - Gastrooesophageal reflux disease [Unknown]
